FAERS Safety Report 21789252 (Version 1)
Quarter: 2022Q4

REPORT INFORMATION
  Report Type: Report from Study
  Country: US (occurrence: US)
  Receive Date: 20221228
  Receipt Date: 20221228
  Transmission Date: 20230112
  Serious: No
  Sender: FDA-Public Use
  Company Number: US-ABBVIE-4207680

PATIENT
  Sex: Female

DRUGS (1)
  1. HUMIRA [Suspect]
     Active Substance: ADALIMUMAB
     Indication: Product used for unknown indication
     Route: 058
     Dates: start: 20110715, end: 20220515

REACTIONS (4)
  - Swelling [Not Recovered/Not Resolved]
  - White blood cell count increased [Unknown]
  - Therapeutic product effect decreased [Unknown]
  - Pain [Unknown]
